FAERS Safety Report 6075079-4 (Version None)
Quarter: 2009Q1

REPORT INFORMATION
  Report Type: 
  Country: None (occurrence: None)
  Receive Date: 20090212
  Receipt Date: 20080317
  Transmission Date: 20090719
  Serious: No
  Sender: FDA-Public Use
  Company Number: CH-JNJFOC-20080400235

PATIENT
  Sex: Male
  Weight: 2.85 kg

DRUGS (1)
  1. TRAMADOL HYDROCHLORIDE [Suspect]
     Indication: DRUG USE FOR UNKNOWN INDICATION
     Route: 064

REACTIONS (2)
  - ATTENTION DEFICIT/HYPERACTIVITY DISORDER [None]
  - WITHDRAWAL SYNDROME [None]
